FAERS Safety Report 4617072-1 (Version None)
Quarter: 2005Q1

REPORT INFORMATION
  Report Type: 
  Country: None (occurrence: None)
  Receive Date: 20050323
  Receipt Date: 20050309
  Transmission Date: 20050727
  Serious: Yes (Death, Other)
  Sender: FDA-Public Use
  Company Number: NSADSS2003003111

PATIENT
  Sex: Female
  Weight: 68.04 kg

DRUGS (9)
  1. LEVAQUIN [Suspect]
     Route: 049
     Dates: start: 20021226, end: 20030102
  2. LEVAQUIN [Suspect]
     Indication: URINARY TRACT INFECTION
     Route: 049
     Dates: start: 20021226, end: 20030102
  3. CYLEXA [Concomitant]
     Route: 065
  4. LASIX [Concomitant]
     Indication: DRUG USE FOR UNKNOWN INDICATION
     Route: 065
  5. PAXIL [Concomitant]
  6. SYNTHROID [Concomitant]
  7. OXAZEPAM [Concomitant]
  8. LISINOPRIL [Concomitant]
  9. PREMARIN [Concomitant]

REACTIONS (7)
  - CARDIOVASCULAR DISORDER [None]
  - HYPOAESTHESIA [None]
  - NAUSEA [None]
  - NERVE INJURY [None]
  - OEDEMA PERIPHERAL [None]
  - RASH MACULAR [None]
  - SERUM SICKNESS [None]
